FAERS Safety Report 4279251-5 (Version None)
Quarter: 2004Q1

REPORT INFORMATION
  Report Type: 
  Country: None (occurrence: None)
  Receive Date: 20040127
  Receipt Date: 20040121
  Transmission Date: 20041129
  Serious: Yes (Other)
  Sender: FDA-Public Use
  Company Number: PHEH2004US01102

PATIENT
  Age: 45 Year
  Sex: Female

DRUGS (1)
  1. AREDIA [Suspect]
     Dosage: 90 MG, QMO
     Route: 042

REACTIONS (2)
  - OSTEONECROSIS [None]
  - TOOTHACHE [None]
